FAERS Safety Report 14484180 (Version 1)
Quarter: 2018Q1

REPORT INFORMATION
  Report Type: Spontaneous
  Country: US (occurrence: US)
  Receive Date: 20180205
  Receipt Date: 20180205
  Transmission Date: 20180509
  Serious: Yes (Other)
  Sender: FDA-Public Use
  Company Number: US-B.I. PHARMACEUTICALS,INC./RIDGEFIELD-2018-BI-005477

PATIENT
  Sex: Male

DRUGS (1)
  1. SPIRIVA [Suspect]
     Active Substance: TIOTROPIUM BROMIDE MONOHYDRATE
     Indication: PRODUCT USED FOR UNKNOWN INDICATION
     Route: 065

REACTIONS (10)
  - Dizziness postural [Unknown]
  - Arthralgia [Unknown]
  - Inguinal hernia [Unknown]
  - Somnolence [Unknown]
  - Dysuria [Unknown]
  - Fatigue [Unknown]
  - Muscular weakness [Unknown]
  - Asthenia [Unknown]
  - Deafness [Unknown]
  - Hallucination, visual [Unknown]
